FAERS Safety Report 5329407-5 (Version None)
Quarter: 2007Q2

REPORT INFORMATION
  Report Type: 
  Country: None (occurrence: None)
  Receive Date: 20070223
  Receipt Date: 20060104
  Transmission Date: 20071010
  Serious: Yes (Disabling, Other)
  Sender: FDA-Public Use
  Company Number: WAES 0511USA03551

PATIENT
  Age: 58 Year
  Sex: Male
  Weight: 97.5234 kg

DRUGS (7)
  1. ZOCOR [Suspect]
     Indication: BLOOD CHOLESTEROL INCREASED
     Dosage: 40 MG/DAILY/PO
     Route: 048
     Dates: start: 20050801, end: 20051001
  2. OMEGA-3 [Concomitant]
  3. PRINIVIL [Concomitant]
  4. ZOLOFT [Concomitant]
  5. OMEPRAZOLE [Concomitant]
  6. MULTI-VITAMINS [Concomitant]
  7. WARFARIN SODIUM [Concomitant]

REACTIONS (1)
  - MYALGIA [None]
